FAERS Safety Report 6506785-2 (Version None)
Quarter: 2009Q4

REPORT INFORMATION
  Report Type: 
  Country: None (occurrence: None)
  Receive Date: 20091216
  Receipt Date: 20091204
  Transmission Date: 20100525
  Serious: Yes (Other)
  Sender: FDA-Public Use
  Company Number: 236709K09USA

PATIENT
  Age: 35 Year
  Sex: Female
  Weight: 63 kg

DRUGS (3)
  1. REBIF [Suspect]
     Indication: MULTIPLE SCLEROSIS
     Dosage: 44 MCG, 3 IN 1 WEEKS, SUBCUTANEOUS
     Route: 058
     Dates: start: 20080814
  2. VALTREX [Concomitant]
  3. LEXAPRO [Concomitant]

REACTIONS (5)
  - AMENORRHOEA [None]
  - BLOOD PROLACTIN INCREASED [None]
  - BREAST DISCHARGE [None]
  - MENSTRUAL DISORDER [None]
  - PITUITARY TUMOUR [None]
